FAERS Safety Report 6607567-3 (Version None)
Quarter: 2010Q1

REPORT INFORMATION
  Report Type: 
  Country: None (occurrence: None)
  Receive Date: 20100301
  Receipt Date: 20100225
  Transmission Date: 20100710
  Serious: Yes (Death, Hospitalization, Other)
  Sender: FDA-Public Use
  Company Number: PHHY2010JP09455

PATIENT
  Sex: Male
  Weight: 57 kg

DRUGS (17)
  1. VOLTAREN [Suspect]
     Indication: BACK PAIN
     Dosage: UNK
     Route: 054
     Dates: start: 20100115, end: 20100129
  2. LASIX [Concomitant]
     Indication: CARDIAC FAILURE CONGESTIVE
     Dosage: 80 MG
     Dates: end: 20100129
  3. LASIX [Concomitant]
     Dosage: 20 MG
     Route: 042
     Dates: start: 20100207
  4. DIGOXIN [Concomitant]
     Indication: CARDIAC FAILURE CONGESTIVE
     Dosage: UNK
     Route: 048
     Dates: end: 20100129
  5. EPLERENONE [Concomitant]
     Indication: CARDIAC FAILURE CONGESTIVE
     Dosage: UNK
     Route: 048
     Dates: end: 20100129
  6. NORVASC [Concomitant]
     Dosage: UNK
     Route: 048
     Dates: end: 20100129
  7. ASPIRIN [Concomitant]
     Indication: ANTIPLATELET THERAPY
     Dosage: UNK
     Route: 048
     Dates: end: 20100129
  8. WARFARIN [Concomitant]
     Indication: ANTICOAGULANT THERAPY
     Dosage: UNK
     Route: 048
     Dates: end: 20100129
  9. CEROCRAL [Concomitant]
     Indication: DIZZINESS
     Dosage: UNK
     Route: 048
     Dates: end: 20100129
  10. DEPAS [Concomitant]
     Indication: DIZZINESS
     Dosage: UNK
     Route: 048
     Dates: end: 20100129
  11. ADJUST-A [Concomitant]
     Indication: CONSTIPATION
     Dosage: UNK
     Route: 048
     Dates: end: 20100129
  12. TAKEPRON [Concomitant]
     Indication: GASTROINTESTINAL HAEMORRHAGE
     Dosage: UNK
     Route: 048
     Dates: end: 20100129
  13. NEO-MINOPHAGEN C [Concomitant]
     Indication: LIVER DISORDER
     Dosage: 2 DF, UNK
     Route: 042
     Dates: start: 20100129, end: 20100212
  14. ADELAVIN [Concomitant]
     Indication: LIVER DISORDER
     Dosage: 2 DF, UNK
     Route: 042
     Dates: start: 20100129
  15. CIPROXAN [Concomitant]
     Indication: SEPSIS
     Dosage: 200 MG
     Route: 048
     Dates: start: 20100201
  16. CIPROXAN [Concomitant]
     Dosage: 300 MG
     Route: 048
  17. URSO 250 [Concomitant]
     Indication: JAUNDICE
     Dosage: 300 MG
     Route: 048
     Dates: start: 20100202, end: 20100212

REACTIONS (15)
  - ASCITES [None]
  - BACK PAIN [None]
  - COAGULOPATHY [None]
  - DISSEMINATED INTRAVASCULAR COAGULATION [None]
  - HAEMATEMESIS [None]
  - HEPATIC ATROPHY [None]
  - HEPATIC FAILURE [None]
  - HEPATIC FUNCTION ABNORMAL [None]
  - LIVER DISORDER [None]
  - LYMPHOCYTE STIMULATION TEST POSITIVE [None]
  - MULTI-ORGAN DISORDER [None]
  - PLATELET COUNT DECREASED [None]
  - RENAL DISORDER [None]
  - RENAL FAILURE [None]
  - RENAL IMPAIRMENT [None]
